FAERS Safety Report 20303440 (Version 1)
Quarter: 2022Q1

REPORT INFORMATION
  Report Type: Other
  Country: FR (occurrence: FR)
  Receive Date: 20220106
  Receipt Date: 20220106
  Transmission Date: 20220423
  Serious: Yes (Hospitalization)
  Sender: FDA-Public Use
  Company Number: None

PATIENT

DRUGS (6)
  1. LEVETIRACETAM [Suspect]
     Active Substance: LEVETIRACETAM
     Indication: Encephalitis
     Dosage: 500 MILLIGRAM, BID
     Route: 048
     Dates: start: 20210803
  2. LEVETIRACETAM [Suspect]
     Active Substance: LEVETIRACETAM
     Dosage: 500 MILLIGRAM, BID
     Route: 048
     Dates: start: 20210730, end: 20210730
  3. LEVETIRACETAM [Suspect]
     Active Substance: LEVETIRACETAM
     Dosage: 750 MILLIGRAM, BID
     Route: 048
     Dates: start: 20210731, end: 20210802
  4. AMOXICILLIN [Suspect]
     Active Substance: AMOXICILLIN
     Indication: Encephalitis
     Dosage: 1 GRAM
     Route: 041
     Dates: start: 20210803, end: 20210804
  5. AMOXICILLIN [Suspect]
     Active Substance: AMOXICILLIN
     Dosage: 2.5 GRAM
     Route: 041
     Dates: start: 20210802, end: 20210803
  6. ACYCLOVIR [Suspect]
     Active Substance: ACYCLOVIR
     Indication: Encephalitis
     Dosage: 500 MILLIGRAM
     Route: 042
     Dates: start: 20210731, end: 20210803

REACTIONS (2)
  - Acute kidney injury [Recovered/Resolved]
  - Encephalopathy [Recovered/Resolved]

NARRATIVE: CASE EVENT DATE: 20210803
